FAERS Safety Report 9869528 (Version 1)
Quarter: 2014Q1

REPORT INFORMATION
  Report Type: Spontaneous
  Country: CA (occurrence: None)
  Receive Date: 20140203
  Receipt Date: 20140203
  Transmission Date: 20141002
  Serious: Yes (Other)
  Sender: FDA-Public Use
  Company Number: COR_00030_2014

PATIENT
  Age: 25 Year
  Sex: Male

DRUGS (4)
  1. CCNU [Suspect]
     Indication: GLIOBLASTOMA
     Dosage: 2 CYCLES
     Dates: start: 201310
  2. FRAGMIN [Concomitant]
  3. KEPPRA [Concomitant]
  4. CLOBAZAM [Concomitant]

REACTIONS (2)
  - Therapeutic response decreased [None]
  - Thrombosis [None]
